FAERS Safety Report 21794383 (Version 1)
Quarter: 2022Q4

REPORT INFORMATION
  Report Type: Other
  Country: None (occurrence: CN)
  Receive Date: 20221229
  Receipt Date: 20221229
  Transmission Date: 20230113
  Serious: Yes (Hospitalization, Other)
  Sender: FDA-Public Use
  Company Number: CN-B.Braun Medical Inc.-2136263

PATIENT
  Age: 83 Year
  Sex: Female

DRUGS (1)
  1. CEFOXITIN AND DEXTROSE [Suspect]
     Active Substance: CEFOXITIN SODIUM

REACTIONS (1)
  - Extravasation [Recovered/Resolved]
